FAERS Safety Report 8381004-3 (Version None)
Quarter: 2012Q2

REPORT INFORMATION
  Report Type: 
  Country: None (occurrence: None)
  Receive Date: 20120523
  Receipt Date: 20120517
  Transmission Date: 20120825
  Serious: Yes (Other)
  Sender: FDA-Public Use
  Company Number: IT-PFIZER INC-2012117347

PATIENT
  Age: 41 Year
  Sex: Female

DRUGS (7)
  1. NEXIUM [Concomitant]
     Dosage: 20 MG, UNK
     Route: 048
     Dates: start: 20110613, end: 20120315
  2. KYTRIL [Concomitant]
     Indication: ANTIEMETIC SUPPORTIVE CARE
     Dosage: 3 MG, UNK
     Route: 042
     Dates: start: 20111229, end: 20120306
  3. DEXAMETHASONE PHOSPHATE [Concomitant]
     Dosage: 8 MG, UNK
     Route: 042
     Dates: start: 20111229, end: 20120306
  4. EPIRUBICIN HYDROCHLORIDE [Suspect]
     Indication: GASTRIC NEOPLASM
     Dosage: 80 MG, CYCLIC
     Route: 042
     Dates: start: 20111229, end: 20120306
  5. LEUCOVORIN CALCIUM [Suspect]
     Indication: GASTRIC NEOPLASM
     Dosage: 40 MG, CYCLIC
     Route: 042
     Dates: start: 20111229, end: 20120313
  6. ELOXATIN [Suspect]
     Indication: GASTRIC NEOPLASM
     Dosage: 200 MG, CYCLIC
     Route: 042
     Dates: start: 20111229, end: 20120306
  7. FLUOROURACIL [Suspect]
     Indication: GASTRIC NEOPLASM
     Dosage: 800 MG, CYCLIC
     Route: 040
     Dates: start: 20111229, end: 20120313

REACTIONS (1)
  - CONJUNCTIVITIS [None]
